FAERS Safety Report 5404229-5 (Version None)
Quarter: 2007Q3

REPORT INFORMATION
  Report Type: 
  Country: None (occurrence: None)
  Receive Date: 20070802
  Receipt Date: 20070724
  Transmission Date: 20080115
  Serious: Yes (Other)
  Sender: FDA-Public Use
  Company Number: US-ASTRAZENECA-2007UW13747

PATIENT
  Age: 65 Year
  Sex: Female
  Weight: 81.6 kg

DRUGS (22)
  1. ARIMIDEX [Suspect]
     Indication: BREAST CANCER
     Route: 048
     Dates: start: 20060301, end: 20061101
  2. LEVOTHYROXINE SODIUM [Concomitant]
  3. PRILOSEC [Concomitant]
  4. BENICAR [Concomitant]
     Indication: BLOOD PRESSURE
     Dosage: 40/25
  5. METHYLDOPA [Concomitant]
  6. ACEBUTOLOL [Concomitant]
  7. CATAPRES [Concomitant]
     Route: 062
  8. LEXAPRO [Concomitant]
  9. ALLEGRA [Concomitant]
     Route: 048
  10. CELEBREX [Concomitant]
     Route: 048
  11. MULTIVITAMIN [Concomitant]
  12. POTASSIUM XR [Concomitant]
     Route: 048
  13. PROCARDIA ER [Concomitant]
     Indication: BLOOD PRESSURE
     Route: 048
  14. TOPROL-XL [Concomitant]
     Indication: BLOOD PRESSURE
     Route: 048
  15. AMBIEN CR [Concomitant]
     Route: 048
  16. TYLENOL EXTRA STRENGTH [Concomitant]
  17. CENTRUM [Concomitant]
  18. GLUCOSAMINE/CHONDROITIN [Concomitant]
  19. VITAMIN B COMPLEX CAP [Concomitant]
  20. FISH OIL [Concomitant]
  21. PRINIVIL [Concomitant]
  22. HYDROCHLOROTHIAZIDE [Concomitant]

REACTIONS (3)
  - LUPUS-LIKE SYNDROME [None]
  - NEUROPATHY PERIPHERAL [None]
  - VULVAR DYSPLASIA [None]
